FAERS Safety Report 5857343-4 (Version None)
Quarter: 2008Q3

REPORT INFORMATION
  Report Type: 
  Country: None (occurrence: None)
  Receive Date: 20080826
  Receipt Date: 20080818
  Transmission Date: 20090109
  Serious: Yes (Hospitalization)
  Sender: FDA-Public Use
  Company Number: GB-TEVA-176230ISR

PATIENT
  Age: 76 Year
  Sex: Female

DRUGS (2)
  1. TRIMETHOPRIM [Suspect]
     Indication: URINARY TRACT INFECTION
     Route: 048
  2. REPAGLINIDE [Suspect]
     Indication: DIABETES MELLITUS
     Route: 048

REACTIONS (2)
  - HYPERMETROPIA [None]
  - HYPOGLYCAEMIA [None]
